FAERS Safety Report 23745975 (Version 1)
Quarter: 2024Q2

REPORT INFORMATION
  Report Type: Report from Study
  Country: ZA (occurrence: ZA)
  Receive Date: 20240416
  Receipt Date: 20240416
  Transmission Date: 20240716
  Serious: Yes (Hospitalization)
  Sender: FDA-Public Use
  Company Number: ZA-ABBVIE-5720579

PATIENT
  Sex: Female

DRUGS (2)
  1. BOTOX [Suspect]
     Active Substance: ONABOTULINUMTOXINA
     Indication: Torticollis
     Dosage: TIME INTERVAL: AS NECESSARY: 250 UNITS (200+50)?FORM STRENGTH: 200UNIT?FREQUENCY TEXT: EVERY 4 MO...
     Route: 065
     Dates: start: 2022, end: 2022
  2. BOTOX [Suspect]
     Active Substance: ONABOTULINUMTOXINA
     Indication: Torticollis
     Dosage: TIME INTERVAL: AS NECESSARY: 250 UNITS (200+50)?FORM STRENGTH: 50UNIT?FREQUENCY TEXT: EVERY 4 MONTHS
     Route: 065
     Dates: start: 2022, end: 2022

REACTIONS (1)
  - Limb operation [Unknown]
